FAERS Safety Report 22588757 (Version 2)
Quarter: 2023Q2

REPORT INFORMATION
  Report Type: Spontaneous
  Country: None (occurrence: US)
  Receive Date: 20230612
  Receipt Date: 20230613
  Transmission Date: 20230721
  Serious: Yes (Disabling)
  Sender: FDA-Public Use
  Company Number: US-D.O.R.C. International, b.v.-2142578

PATIENT

DRUGS (1)
  1. TISSUEBLUE [Suspect]
     Active Substance: BRILLIANT BLUE G
     Route: 031
     Dates: start: 20210203, end: 20210203

REACTIONS (1)
  - Retinal phototoxicity [Unknown]

NARRATIVE: CASE EVENT DATE: 20210303
